FAERS Safety Report 7001001-X (Version None)
Quarter: 2010Q3

REPORT INFORMATION
  Report Type: 
  Country: None (occurrence: None)
  Receive Date: 20100920
  Receipt Date: 20071119
  Transmission Date: 20110219
  Serious: Yes (Other)
  Sender: FDA-Public Use
  Company Number: US-ASTRAZENECA-2006UW21982

PATIENT
  Age: 41 Year
  Sex: Male
  Weight: 95.3 kg

DRUGS (8)
  1. SEROQUEL [Suspect]
     Indication: BIPOLAR DISORDER
     Dosage: 200-300 MG
     Route: 048
     Dates: start: 19900101
  2. SEROQUEL [Suspect]
     Indication: DEPRESSION
     Dosage: 200-300 MG
     Route: 048
     Dates: start: 19900101
  3. SEROQUEL [Suspect]
     Dosage: 150 TO 300 MG
     Route: 048
     Dates: start: 20031012
  4. SEROQUEL [Suspect]
     Dosage: 150 TO 300 MG
     Route: 048
     Dates: start: 20031012
  5. TRAZODONE HCL [Concomitant]
     Dates: start: 20060731
  6. ASPIRIN [Concomitant]
     Dates: start: 20060501
  7. ENALAPRIL [Concomitant]
     Dates: start: 20070730
  8. BEXTRA [Concomitant]
     Dates: start: 20031012

REACTIONS (12)
  - BACK DISORDER [None]
  - BLOOD CHOLESTEROL INCREASED [None]
  - BLOOD TRIGLYCERIDES INCREASED [None]
  - DEHYDRATION [None]
  - DIABETES MELLITUS [None]
  - DIABETIC COMA [None]
  - DIABETIC HYPEROSMOLAR COMA [None]
  - DIABETIC KETOACIDOSIS [None]
  - GESTATIONAL DIABETES [None]
  - MUSCLE STRAIN [None]
  - PANCREATITIS [None]
  - TYPE 2 DIABETES MELLITUS [None]
